FAERS Safety Report 22888160 (Version 2)
Quarter: 2024Q1

REPORT INFORMATION
  Report Type: Report from Study
  Country: ES (occurrence: ES)
  Receive Date: 20230831
  Receipt Date: 20240207
  Transmission Date: 20240410
  Serious: Yes (Life-Threatening, Other)
  Sender: FDA-Public Use
  Company Number: ES-PFIZER INC-PV202300142600

PATIENT

DRUGS (5)
  1. CISPLATIN [Suspect]
     Active Substance: CISPLATIN
     Indication: Bladder cancer
     Dosage: ON DAY 2, ADMINISTERED EVERY TWO WEEKS, FOR UP TO 4 CYCLES (8 WEEKS)
  2. DOXORUBICIN HYDROCHLORIDE [Suspect]
     Active Substance: DOXORUBICIN HYDROCHLORIDE
     Indication: Bladder cancer
     Dosage: ON DAY 2, ADMINISTERED EVERY TWO WEEKS, FOR UP TO 4 CYCLES (8 WEEKS)
  3. METHOTREXATE SODIUM [Suspect]
     Active Substance: METHOTREXATE SODIUM
     Indication: Bladder cancer
     Dosage: ON DAY 1, ADMINISTERED EVERY TWO WEEKS, FOR UP TO 4 CYCLES (8 WEEKS)
  4. FILGRASTIM [Suspect]
     Active Substance: FILGRASTIM
     Indication: Bladder cancer
     Dosage: ON DAYS 3-7, ADMINISTERED EVERY TWO WEEKS, FOR UP TO 4 CYCLES (8 WEEKS)
     Route: 058
  5. VINBLASTINE [Suspect]
     Active Substance: VINBLASTINE
     Indication: Bladder cancer
     Dosage: ON DAY 2, ADMINISTERED EVERY TWO WEEKS, FOR UP TO 4 CYCLES (8 WEEKS)

REACTIONS (1)
  - Stomatitis [Unknown]
